FAERS Safety Report 7658334-3 (Version None)
Quarter: 2011Q3

REPORT INFORMATION
  Report Type: 
  Country: None (occurrence: None)
  Receive Date: 20110804
  Receipt Date: 20110804
  Transmission Date: 20111222
  Serious: Yes (Hospitalization)
  Sender: FDA-Public Use
  Company Number: None

PATIENT
  Age: 64 Year
  Sex: Male
  Weight: 131.8 kg

DRUGS (1)
  1. WARFARIN SODIUM [Suspect]
     Indication: ATRIAL FIBRILLATION
     Dates: start: 20110119, end: 20110801

REACTIONS (12)
  - UPPER GASTROINTESTINAL HAEMORRHAGE [None]
  - NEOPLASM MALIGNANT [None]
  - DIARRHOEA [None]
  - HEPATIC CIRRHOSIS [None]
  - HAEMOGLOBIN DECREASED [None]
  - PEPTIC ULCER [None]
  - GASTRITIS [None]
  - MELAENA [None]
  - IRON DEFICIENCY [None]
  - GASTRIC HAEMORRHAGE [None]
  - LOWER GASTROINTESTINAL HAEMORRHAGE [None]
  - VARICOSE VEIN [None]
